FAERS Safety Report 23263942 (Version 2)
Quarter: 2024Q4

REPORT INFORMATION
  Report Type: Spontaneous
  Country: US (occurrence: US)
  Receive Date: 20231205
  Receipt Date: 20241130
  Transmission Date: 20250115
  Serious: No
  Sender: SANOFI AVENTIS
  Company Number: US-SA-SAC20231130000907

PATIENT
  Age: 19 Year
  Sex: Female

DRUGS (2)
  1. ELOCTATE [Suspect]
     Active Substance: EFMOROCTOCOG ALFA
     Indication: Von Willebrand^s disease
     Dosage: 5000 IU, QM
     Route: 042
     Dates: start: 201311
  2. ELOCTATE [Suspect]
     Active Substance: EFMOROCTOCOG ALFA
     Indication: Von Willebrand^s disease
     Dosage: 5000 IU, QM
     Route: 042
     Dates: start: 201311

REACTIONS (2)
  - Heavy menstrual bleeding [Recovered/Resolved]
  - Off label use [Unknown]

NARRATIVE: CASE EVENT DATE: 20131101
